FAERS Safety Report 21833382 (Version 1)
Quarter: 2023Q1

REPORT INFORMATION
  Report Type: Spontaneous
  Country: DE (occurrence: DE)
  Receive Date: 20230107
  Receipt Date: 20230107
  Transmission Date: 20230418
  Serious: Yes (Other)
  Sender: FDA-Public Use
  Company Number: DE-BAXTER-2022BAX031344

PATIENT

DRUGS (27)
  1. BORTEZOMIB [Suspect]
     Active Substance: BORTEZOMIB
     Indication: Plasma cell myeloma
     Dosage: FIRST LINE TREATMENT
     Route: 065
     Dates: start: 20180216
  2. DOXORUBICIN [Suspect]
     Active Substance: DOXORUBICIN
     Indication: Plasma cell myeloma
     Dosage: FIFTH LINE TREATMENT
     Route: 065
     Dates: start: 20220618
  3. LENALIDOMIDE [Suspect]
     Active Substance: LENALIDOMIDE
     Indication: Plasma cell myeloma
     Dosage: FIRST LINE TREATMENT
     Route: 065
     Dates: start: 20180216
  4. MELPHALAN [Suspect]
     Active Substance: MELPHALAN
     Indication: Plasma cell myeloma
     Dosage: FIRST LINE TREATMENT
     Route: 065
     Dates: start: 20180216
  5. MELPHALAN [Suspect]
     Active Substance: MELPHALAN
     Dosage: SECOND LINE TREATMENT
     Route: 065
     Dates: start: 20200911
  6. ETOPOSIDE [Suspect]
     Active Substance: ETOPOSIDE
     Indication: Plasma cell myeloma
     Dosage: FIFTH LINE TREATMENT
     Route: 065
     Dates: start: 20220618
  7. CARFILZOMIB [Suspect]
     Active Substance: CARFILZOMIB
     Indication: Plasma cell myeloma
     Dosage: THIRD LINE TREATMENT
     Route: 065
     Dates: start: 20220323, end: 20220504
  8. CARFILZOMIB [Suspect]
     Active Substance: CARFILZOMIB
     Dosage: FOURTH LINE TREATMENT
     Route: 065
     Dates: start: 20220420
  9. CYTARABINE [Suspect]
     Active Substance: CYTARABINE
     Indication: Meningeal disorder
     Dosage: SECOND LINE TREATMENT
     Route: 065
     Dates: start: 20200911
  10. CYTARABINE [Suspect]
     Active Substance: CYTARABINE
     Indication: Plasma cell myeloma
  11. CYCLOPHOSPHAMIDE [Suspect]
     Active Substance: CYCLOPHOSPHAMIDE
     Indication: Plasma cell myeloma
     Dosage: FIRST LINE TREATMENT
     Route: 065
     Dates: start: 20180216, end: 20180709
  12. CYCLOPHOSPHAMIDE [Suspect]
     Active Substance: CYCLOPHOSPHAMIDE
     Dosage: FIFTH LINE TREATMENT
     Route: 065
     Dates: start: 20220618
  13. GENETICALLY-MODIFIED AUTOLOGOUS T CELLS NOS [Suspect]
     Active Substance: GENETICALLY-MODIFIED AUTOLOGOUS T CELLS NOS
     Indication: Plasma cell myeloma
     Dosage: BCMA-TARGETED, SIXTH LINE TREATMENT
     Route: 065
     Dates: start: 20220713
  14. CISPLATIN [Suspect]
     Active Substance: CISPLATIN
     Indication: Plasma cell myeloma
     Dosage: FIFTH LINE TREATMENT
     Route: 065
     Dates: start: 20220618
  15. DARATUMUMAB [Suspect]
     Active Substance: DARATUMUMAB
     Indication: Plasma cell myeloma
     Dosage: SECOND LINE TREATMENT
     Route: 065
     Dates: start: 20200911
  16. DARATUMUMAB [Suspect]
     Active Substance: DARATUMUMAB
     Indication: Meningeal disorder
     Dosage: FOURTH LINE TREATMENT
     Route: 065
     Dates: start: 20220420, end: 20220517
  17. DARATUMUMAB [Suspect]
     Active Substance: DARATUMUMAB
     Dosage: FIFTH LINE TREATMENT
     Route: 065
     Dates: start: 20220618
  18. DEXAMETHASONE [Suspect]
     Active Substance: DEXAMETHASONE
     Indication: Plasma cell myeloma
     Dosage: FIRST LINE TREATMENT
     Route: 065
     Dates: start: 20180216, end: 20180709
  19. DEXAMETHASONE [Suspect]
     Active Substance: DEXAMETHASONE
     Dosage: SECOND LINE TREATMENT
     Route: 065
     Dates: start: 20200911
  20. DEXAMETHASONE [Suspect]
     Active Substance: DEXAMETHASONE
     Dosage: THIRD LINE TREATMENT
     Route: 065
     Dates: start: 20220323, end: 20220504
  21. DEXAMETHASONE [Suspect]
     Active Substance: DEXAMETHASONE
     Dosage: FOURTH LINE TREATMENT
     Route: 065
     Dates: start: 20220420, end: 20220517
  22. DEXAMETHASONE [Suspect]
     Active Substance: DEXAMETHASONE
     Dosage: FIFTH LINE TREATMENT
     Route: 065
     Dates: start: 20220618
  23. ISATUXIMAB [Suspect]
     Active Substance: ISATUXIMAB
     Indication: Plasma cell myeloma
     Dosage: THIRD LINE TREATMENT
     Route: 065
     Dates: start: 20220323
  24. METHOTREXATE [Suspect]
     Active Substance: METHOTREXATE
     Indication: Meningeal disorder
     Dosage: SECOND LINE TREATMENT
     Route: 065
     Dates: start: 20200911
  25. METHOTREXATE [Suspect]
     Active Substance: METHOTREXATE
     Indication: Plasma cell myeloma
  26. THIOTEPA [Suspect]
     Active Substance: THIOTEPA
     Indication: Meningeal disorder
     Dosage: SECOND LINE TREATMENT
     Route: 065
     Dates: start: 20200911
  27. THIOTEPA [Suspect]
     Active Substance: THIOTEPA
     Indication: Plasma cell myeloma

REACTIONS (2)
  - Disease progression [Unknown]
  - Plasma cell myeloma refractory [Unknown]
